FAERS Safety Report 7240344-1 (Version None)
Quarter: 2011Q1

REPORT INFORMATION
  Report Type: 
  Country: None (occurrence: None)
  Receive Date: 20110113
  Receipt Date: 20110103
  Transmission Date: 20110831
  Serious: Yes (Hospitalization)
  Sender: FDA-Public Use
  Company Number: 023964

PATIENT
  Sex: Female

DRUGS (11)
  1. METHOTREXATE [Concomitant]
  2. PANTOPRAZOLE [Concomitant]
  3. FOLIC ACID [Concomitant]
  4. CIMZIA [Suspect]
     Indication: RHEUMATOID ARTHRITIS
     Dosage: (SUBCUTANEOUS)
     Route: 058
     Dates: start: 20101013, end: 20101216
  5. IBUPROFEN [Concomitant]
  6. AMLODIPINE [Concomitant]
  7. AMLODIPINE [Concomitant]
  8. PREDNISOLONE [Concomitant]
  9. MARCUMAR [Concomitant]
  10. EUTHYROX [Concomitant]
  11. RAMIPRIL [Concomitant]

REACTIONS (11)
  - MACULAR HOLE [None]
  - MITRAL VALVE INCOMPETENCE [None]
  - CAROTID ARTERY STENOSIS [None]
  - CAROTID ARTERIOSCLEROSIS [None]
  - AORTIC VALVE INCOMPETENCE [None]
  - LYMPHADENOPATHY [None]
  - LEFT ATRIAL DILATATION [None]
  - RETINAL ARTERY OCCLUSION [None]
  - DEEP VEIN THROMBOSIS [None]
  - SCOTOMA [None]
  - LEUKOENCEPHALOPATHY [None]
